FAERS Safety Report 13132215 (Version 1)
Quarter: 2017Q1

REPORT INFORMATION
  Report Type: Report from Study
  Country: CN (occurrence: CN)
  Receive Date: 20170119
  Receipt Date: 20170119
  Transmission Date: 20170428
  Serious: Yes (Hospitalization, Other)
  Sender: FDA-Public Use
  Company Number: CN-ROCHE-1789033

PATIENT
  Age: 47 Year
  Sex: Female
  Weight: 52 kg

DRUGS (1)
  1. AVASTIN [Suspect]
     Active Substance: BEVACIZUMAB
     Indication: NON-SMALL CELL LUNG CANCER
     Route: 041
     Dates: start: 20151017

REACTIONS (8)
  - Intestinal obstruction [Unknown]
  - Mass [Unknown]
  - Condition aggravated [Unknown]
  - Chest pain [Not Recovered/Not Resolved]
  - Discomfort [Unknown]
  - Dyspnoea [Unknown]
  - Asthenia [Unknown]
  - Hypoaesthesia [Unknown]

NARRATIVE: CASE EVENT DATE: 201603
